FAERS Safety Report 21280089 (Version 1)
Quarter: 2022Q3

REPORT INFORMATION
  Report Type: Spontaneous
  Country: CN (occurrence: CN)
  Receive Date: 20220901
  Receipt Date: 20220901
  Transmission Date: 20221026
  Serious: Yes (Other)
  Sender: FDA-Public Use
  Company Number: CN-Merck Healthcare KGaA-9346329

PATIENT
  Age: 64 Year
  Sex: Male
  Weight: 70 kg

DRUGS (5)
  1. ERBITUX [Suspect]
     Active Substance: CETUXIMAB
     Indication: Colon cancer
     Dosage: 140 ML, UNK
     Route: 041
     Dates: start: 20220712, end: 20220712
  2. IRINOTECAN HYDROCHLORIDE [Suspect]
     Active Substance: IRINOTECAN HYDROCHLORIDE
     Indication: Colon cancer
     Dosage: 12 ML, DAILY
     Route: 041
     Dates: start: 20220712, end: 20220712
  3. RALTITREXED [Suspect]
     Active Substance: RALTITREXED
     Indication: Colon cancer
     Dosage: 4 MG, DAILY
     Route: 041
     Dates: start: 20220712, end: 20220712
  4. SODIUM CHLORIDE [Concomitant]
     Active Substance: SODIUM CHLORIDE
     Indication: Medication dilution
     Dosage: 250 ML, DAILY
     Route: 041
     Dates: start: 20220712, end: 20220712
  5. SODIUM CHLORIDE [Concomitant]
     Active Substance: SODIUM CHLORIDE
     Dosage: 100 ML, DAILY
     Route: 041
     Dates: start: 20220712, end: 20220712

REACTIONS (1)
  - Full blood count decreased [Recovered/Resolved]

NARRATIVE: CASE EVENT DATE: 20220718
